FAERS Safety Report 7643845-7 (Version None)
Quarter: 2011Q3

REPORT INFORMATION
  Report Type: 
  Country: None (occurrence: None)
  Receive Date: 20110729
  Receipt Date: 20100721
  Transmission Date: 20111222
  Serious: No
  Sender: FDA-Public Use
  Company Number: US-GLAXOSMITHKLINE-A0871694A

PATIENT
  Age: 48 Year
  Sex: Female

DRUGS (2)
  1. NO CONCURRENT MEDICATION [Concomitant]
  2. IMITREX [Suspect]
     Indication: MIGRAINE
     Dosage: 50MG AS REQUIRED
     Route: 048
     Dates: start: 20000101

REACTIONS (4)
  - PARAESTHESIA [None]
  - CHEST DISCOMFORT [None]
  - DIZZINESS [None]
  - SENSATION OF BLOOD FLOW [None]
